FAERS Safety Report 23649462 (Version 1)
Quarter: 2024Q1

REPORT INFORMATION
  Report Type: Spontaneous
  Country: US (occurrence: US)
  Receive Date: 20240319
  Receipt Date: 20240319
  Transmission Date: 20240409
  Serious: No
  Sender: FDA-Public Use
  Company Number: US-TAKEDA-2024TUS022535

PATIENT

DRUGS (2)
  1. VYVANSE [Suspect]
     Active Substance: LISDEXAMFETAMINE DIMESYLATE
     Indication: Learning disability
     Dosage: UNK
     Route: 065
     Dates: start: 2013
  2. VYVANSE [Suspect]
     Active Substance: LISDEXAMFETAMINE DIMESYLATE
     Dosage: 40 MILLIGRAM
     Route: 065

REACTIONS (4)
  - Product availability issue [Unknown]
  - Product use issue [Unknown]
  - Product use in unapproved indication [Unknown]
  - No adverse event [Unknown]
